FAERS Safety Report 11540327 (Version 1)
Quarter: 2015Q3

REPORT INFORMATION
  Report Type: Spontaneous
  Country: US (occurrence: US)
  Receive Date: 20150923
  Receipt Date: 20150923
  Transmission Date: 20151125
  Serious: No
  Sender: FDA-Public Use
  Company Number: US-BEH-2014043686

PATIENT
  Age: 60 Year
  Sex: Female
  Weight: 94 kg

DRUGS (29)
  1. PRIVIGEN [Suspect]
     Active Substance: HUMAN IMMUNOGLOBULIN G
     Indication: IMMUNODEFICIENCY COMMON VARIABLE
     Route: 042
  2. PRIVIGEN [Suspect]
     Active Substance: HUMAN IMMUNOGLOBULIN G
     Route: 042
  3. SIMVASTATIN. [Concomitant]
     Active Substance: SIMVASTATIN
  4. AMBIEN [Concomitant]
     Active Substance: ZOLPIDEM TARTRATE
  5. PRIVIGEN [Suspect]
     Active Substance: HUMAN IMMUNOGLOBULIN G
     Route: 042
  6. PRIVIGEN [Suspect]
     Active Substance: HUMAN IMMUNOGLOBULIN G
     Route: 042
  7. NASACORT [Concomitant]
     Active Substance: TRIAMCINOLONE ACETONIDE
  8. CREON [Concomitant]
     Active Substance: PANCRELIPASE AMYLASE\PANCRELIPASE LIPASE\PANCRELIPASE PROTEASE
  9. ZANAFLEX [Concomitant]
     Active Substance: TIZANIDINE HYDROCHLORIDE
  10. SINGULAIR [Concomitant]
     Active Substance: MONTELUKAST SODIUM
  11. LOSARTAN POTASSIUM. [Concomitant]
     Active Substance: LOSARTAN POTASSIUM
  12. LYRICA [Concomitant]
     Active Substance: PREGABALIN
  13. LAMICTAL [Concomitant]
     Active Substance: LAMOTRIGINE
  14. TIZANIDINE. [Concomitant]
     Active Substance: TIZANIDINE
  15. DIPHENHYDRAMINE. [Concomitant]
     Active Substance: DIPHENHYDRAMINE
  16. EPIPEN [Concomitant]
     Active Substance: EPINEPHRINE
  17. HEPARIN [Concomitant]
     Active Substance: HEPARIN SODIUM
  18. SODIUM CHLORIDE. [Concomitant]
     Active Substance: SODIUM CHLORIDE
  19. LEVEMIR [Concomitant]
     Active Substance: INSULIN DETEMIR
  20. PROZAC [Concomitant]
     Active Substance: FLUOXETINE HYDROCHLORIDE
  21. CELEBREX [Concomitant]
     Active Substance: CELECOXIB
  22. ESTRATEST HS [Concomitant]
     Active Substance: ESTROGENS, ESTERIFIED\METHYLTESTOSTERONE
  23. HUMALOG [Concomitant]
     Active Substance: INSULIN LISPRO
  24. XANAX [Concomitant]
     Active Substance: ALPRAZOLAM
  25. ASTELIN [Concomitant]
     Active Substance: AZELASTINE HYDROCHLORIDE
  26. ALL OTHER THERAPEUTIC PRODUCTS [Concomitant]
     Active Substance: UNSPECIFIED INGREDIENT
  27. METFORMIN [Concomitant]
     Active Substance: METFORMIN HYDROCHLORIDE
  28. LISINOPRIL. [Concomitant]
     Active Substance: LISINOPRIL
  29. RYTHMOL [Concomitant]
     Active Substance: PROPAFENONE HYDROCHLORIDE

REACTIONS (4)
  - Upper respiratory tract infection [Unknown]
  - Bronchitis [Unknown]
  - Respiratory tract congestion [Not Recovered/Not Resolved]
  - Cough [Not Recovered/Not Resolved]

NARRATIVE: CASE EVENT DATE: 201406
